FAERS Safety Report 7329062-9 (Version None)
Quarter: 2011Q1

REPORT INFORMATION
  Report Type: 
  Country: None (occurrence: None)
  Receive Date: 20110217
  Receipt Date: 20110207
  Transmission Date: 20110831
  Serious: Yes (Hospitalization)
  Sender: FDA-Public Use
  Company Number: 1000018725

PATIENT
  Age: 73 Year
  Sex: Female

DRUGS (6)
  1. LANSOPRAZOLE [Suspect]
  2. LOSARTAN (LOSARTAN) [Suspect]
  3. DILTIAZEM [Suspect]
  4. GLICLAZIDE (GLICLAZIDE) [Suspect]
  5. ACETYLSALICYLIC ACID (ACETYLSALICYLIC ACID) [Suspect]
  6. PIOGLITAZONE [Suspect]

REACTIONS (10)
  - HYPONATRAEMIA [None]
  - VOMITING [None]
  - BLOOD GLUCOSE INCREASED [None]
  - BLOOD UREA INCREASED [None]
  - ASTHENIA [None]
  - INAPPROPRIATE ANTIDIURETIC HORMONE SECRETION [None]
  - CONFUSIONAL STATE [None]
  - RESPIRATORY RATE INCREASED [None]
  - BLOOD CREATININE INCREASED [None]
  - NAUSEA [None]
